FAERS Safety Report 23922607 (Version 1)
Quarter: 2024Q2

REPORT INFORMATION
  Report Type: Spontaneous
  Country: BR (occurrence: BR)
  Receive Date: 20240531
  Receipt Date: 20240531
  Transmission Date: 20240715
  Serious: Yes (Hospitalization)
  Sender: FDA-Public Use
  Company Number: BR-JNJFOC-20240576185

PATIENT

DRUGS (2)
  1. REMICADE [Suspect]
     Active Substance: INFLIXIMAB
     Indication: Product used for unknown indication
     Route: 041
     Dates: end: 2018
  2. REMICADE [Suspect]
     Active Substance: INFLIXIMAB
     Dosage: THERAPY AGAIN STARTED ON 2022
     Route: 041

REACTIONS (3)
  - Adverse event [Unknown]
  - Sinusitis [Unknown]
  - Dengue fever [Unknown]

NARRATIVE: CASE EVENT DATE: 20180101
